FAERS Safety Report 5739356-6 (Version None)
Quarter: 2008Q2

REPORT INFORMATION
  Report Type: 
  Country: None (occurrence: None)
  Receive Date: 20080514
  Receipt Date: 20070806
  Transmission Date: 20081010
  Serious: Yes (Life-Threatening, Hospitalization)
  Sender: FDA-Public Use
  Company Number: APP200700256

PATIENT
  Sex: Female

DRUGS (1)
  1. VANCOMYCIN HYDROCHLORIDE [Suspect]
     Indication: DRUG USE FOR UNKNOWN INDICATION
     Dosage: INJECTION
     Dates: start: 20070707

REACTIONS (2)
  - CARDIAC DISORDER [None]
  - RED MAN SYNDROME [None]
